FAERS Safety Report 18006445 (Version 1)
Quarter: 2020Q3

REPORT INFORMATION
  Report Type: Spontaneous
  Country: US (occurrence: US)
  Receive Date: 20200710
  Receipt Date: 20200710
  Transmission Date: 20201103
  Serious: Yes (Death)
  Sender: FDA-Public Use
  Company Number: None

PATIENT
  Age: 67 Year
  Sex: Female

DRUGS (6)
  1. METOLAZONE. [Concomitant]
     Active Substance: METOLAZONE
  2. MIDODRINE [Concomitant]
     Active Substance: MIDODRINE
  3. WARFARIN [Concomitant]
     Active Substance: WARFARIN
  4. POT CHLOR MICRO TAB [Concomitant]
  5. TORSEMIDE. [Concomitant]
     Active Substance: TORSEMIDE
  6. ADCIRCA [Suspect]
     Active Substance: TADALAFIL
     Indication: PULMONARY ARTERIAL HYPERTENSION
     Route: 048
     Dates: start: 20190118, end: 20200629

REACTIONS (1)
  - Cardiac failure [None]

NARRATIVE: CASE EVENT DATE: 20200629
